FAERS Safety Report 23683406 (Version 1)
Quarter: 2024Q1

REPORT INFORMATION
  Report Type: Spontaneous
  Country: US (occurrence: US)
  Receive Date: 20240328
  Receipt Date: 20240328
  Transmission Date: 20240410
  Serious: No
  Sender: FDA-Public Use
  Company Number: US-ALKERMES INC.-ALK-2024-000753

PATIENT
  Sex: Female
  Weight: 63.492 kg

DRUGS (5)
  1. LYBALVI [Suspect]
     Active Substance: OLANZAPINE\SAMIDORPHAN L-MALATE
     Indication: Major depression
     Dosage: 10/10 MILLIGRAM, QD
     Route: 048
  2. LYBALVI [Suspect]
     Active Substance: OLANZAPINE\SAMIDORPHAN L-MALATE
     Indication: Schizoaffective disorder bipolar type
  3. LEXAPRO [Concomitant]
     Active Substance: ESCITALOPRAM OXALATE
     Indication: Product used for unknown indication
     Dosage: UNK
     Route: 065
  4. HYDROXYZINE [Concomitant]
     Active Substance: HYDROXYZINE HYDROCHLORIDE
     Indication: Product used for unknown indication
     Dosage: UNK
     Route: 065
  5. OTHER NASAL PREPARATIONS [Concomitant]
     Indication: Hypersensitivity
     Dosage: UNK
     Route: 045

REACTIONS (9)
  - Off label use [Unknown]
  - Condition aggravated [Unknown]
  - Euphoric mood [Unknown]
  - Insomnia [Unknown]
  - Hallucination, auditory [Unknown]
  - Adverse drug reaction [Unknown]
  - Fatigue [Unknown]
  - Dry mouth [Unknown]
  - Constipation [Unknown]
